FAERS Safety Report 6560192-5 (Version None)
Quarter: 2010Q1

REPORT INFORMATION
  Report Type: 
  Country: None (occurrence: None)
  Receive Date: 20100129
  Receipt Date: 20050128
  Transmission Date: 20100710
  Serious: No
  Sender: FDA-Public Use
  Company Number: US-ALLERGAN-200500707

PATIENT
  Age: 61 Year
  Sex: Female

DRUGS (3)
  1. BOTOX COSMETIC [Suspect]
     Indication: SKIN WRINKLING
     Dosage: 40UNITS, PRN
     Route: 030
  2. ALMAY MAKE-UP REMOVER [Concomitant]
     Indication: DRUG USE FOR UNKNOWN INDICATION
  3. UNSPECIFIED RINGWORM OINTMENT [Concomitant]
     Indication: TINEA INFECTION

REACTIONS (3)
  - HYPERSENSITIVITY [None]
  - INJECTION SITE ERYTHEMA [None]
  - INJECTION SITE SWELLING [None]
